FAERS Safety Report 19653150 (Version 3)
Quarter: 2022Q1

REPORT INFORMATION
  Report Type: Other
  Country: IT (occurrence: IT)
  Receive Date: 20210803
  Receipt Date: 20220127
  Transmission Date: 20220423
  Serious: Yes (Hospitalization)
  Sender: FDA-Public Use
  Company Number: IT-002147023-NVSC2021IT162815

PATIENT
  Age: 43 Year
  Sex: Male

DRUGS (2)
  1. RITUXIMAB [Suspect]
     Active Substance: RITUXIMAB
     Indication: Prophylaxis against graft versus host disease
     Dosage: SINGLE DOSE
     Route: 041
     Dates: start: 20191121, end: 20191121
  2. CYCLOPHOSPHAMIDE [Suspect]
     Active Substance: CYCLOPHOSPHAMIDE
     Indication: Prophylaxis against graft versus host disease
     Route: 065
     Dates: start: 201911

REACTIONS (3)
  - Secondary immunodeficiency [Recovered/Resolved]
  - COVID-19 pneumonia [Recovered/Resolved]
  - Off label use [Unknown]

NARRATIVE: CASE EVENT DATE: 20200516
